FAERS Safety Report 15543493 (Version 11)
Quarter: 2019Q2

REPORT INFORMATION
  Report Type: Report from Study
  Country: US (occurrence: US)
  Receive Date: 20181023
  Receipt Date: 20190628
  Transmission Date: 20190711
  Serious: Yes (Hospitalization, Other)
  Sender: FDA-Public Use
  Company Number: US-ACTELION-A-US2018-180545

PATIENT
  Age: 58 Year
  Sex: Female
  Weight: 66.21 kg

DRUGS (3)
  1. VELETRI [Suspect]
     Active Substance: EPOPROSTENOL
     Indication: PULMONARY HYPERTENSION
     Dosage: 31.25 NG/KG, PER MIN
     Route: 042
     Dates: start: 20180309
  2. OPSUMIT [Suspect]
     Active Substance: MACITENTAN
     Indication: PULMONARY HYPERTENSION
     Dosage: 10 MG, QD
     Route: 048
     Dates: start: 20180328
  3. VANCOMYCIN [Suspect]
     Active Substance: VANCOMYCIN
     Indication: PRODUCT USED FOR UNKNOWN INDICATION
     Route: 065

REACTIONS (23)
  - Dyspnoea [Unknown]
  - Hyperaesthesia teeth [Not Recovered/Not Resolved]
  - Amnesia [Unknown]
  - Pain in jaw [Unknown]
  - Haemoglobin decreased [Recovering/Resolving]
  - Aspiration pleural cavity [Not Recovered/Not Resolved]
  - Drug hypersensitivity [Recovered/Resolved]
  - Mineral supplementation [Recovering/Resolving]
  - Pneumonia [Unknown]
  - Lung carcinoma cell type unspecified stage IV [Unknown]
  - Pleural effusion [Unknown]
  - Weight decreased [Unknown]
  - Tachycardia [Unknown]
  - Rash [Recovered/Resolved]
  - Anaemia [Recovering/Resolving]
  - Productive cough [Unknown]
  - Fatigue [Unknown]
  - Urinary tract infection [Unknown]
  - Erythema [Recovered/Resolved]
  - Headache [Unknown]
  - Depressed mood [Recovering/Resolving]
  - Application site pruritus [Unknown]
  - Hypotension [Unknown]

NARRATIVE: CASE EVENT DATE: 20180916
